FAERS Safety Report 22646199 (Version 1)
Quarter: 2023Q2

REPORT INFORMATION
  Report Type: Spontaneous
  Country: CA (occurrence: CA)
  Receive Date: 20230627
  Receipt Date: 20230627
  Transmission Date: 20230721
  Serious: Yes (Hospitalization, Other)
  Sender: FDA-Public Use
  Company Number: CA-SAMSUNG BIOEPIS-SB-2023-16902

PATIENT
  Age: 23 Year
  Sex: Male

DRUGS (2)
  1. ADALIMUMAB [Suspect]
     Active Substance: ADALIMUMAB
     Indication: Crohn^s disease
     Route: 065
  2. ADALIMUMAB [Suspect]
     Active Substance: ADALIMUMAB
     Dosage: UNKNOWN SUBSEQUENT DOSE ESCALATION
     Route: 065

REACTIONS (4)
  - Crohn^s disease [Recovered/Resolved]
  - Alopecia areata [Recovering/Resolving]
  - Drug level below therapeutic [Unknown]
  - Drug ineffective [Unknown]
